FAERS Safety Report 6124676-6 (Version None)
Quarter: 2009Q1

REPORT INFORMATION
  Report Type: 
  Country: None (occurrence: None)
  Receive Date: 20090319
  Receipt Date: 20090309
  Transmission Date: 20090719
  Serious: Yes (Other)
  Sender: FDA-Public Use
  Company Number: US-PFIZER INC-2008154560

PATIENT
  Sex: Female
  Weight: 77.551 kg

DRUGS (4)
  1. LYRICA [Suspect]
     Indication: SCIATICA
     Dosage: 150 MG, 2X/DAY
     Dates: start: 20081125
  2. LIPITOR [Concomitant]
     Dosage: UNK
  3. LEXAPRO [Concomitant]
     Dosage: UNK
  4. LORTAB [Concomitant]
     Dosage: UNK

REACTIONS (13)
  - AMNESIA [None]
  - ANOREXIA [None]
  - BALANCE DISORDER [None]
  - CONFUSIONAL STATE [None]
  - CONVULSION [None]
  - DIARRHOEA [None]
  - DIZZINESS [None]
  - DYSKINESIA [None]
  - FATIGUE [None]
  - MUSCLE TWITCHING [None]
  - MYOCLONUS [None]
  - VISUAL IMPAIRMENT [None]
  - WEIGHT INCREASED [None]
